FAERS Safety Report 6801613-X (Version None)
Quarter: 2010Q2

REPORT INFORMATION
  Report Type: 
  Country: None (occurrence: None)
  Receive Date: 20100629
  Receipt Date: 20100628
  Transmission Date: 20101027
  Serious: Yes (Other)
  Sender: FDA-Public Use
  Company Number: US-MERCK-1005USA03086

PATIENT

DRUGS (3)
  1. DECADRON [Suspect]
     Route: 048
  2. OXALIPLATIN [Concomitant]
     Indication: ENDOMETRIAL CANCER
     Route: 065
  3. EMEND [Concomitant]
     Route: 065

REACTIONS (2)
  - DEPRESSION [None]
  - SUICIDAL IDEATION [None]
